FAERS Safety Report 20512284 (Version 1)
Quarter: 2022Q1

REPORT INFORMATION
  Report Type: Report from Study
  Country: US (occurrence: US)
  Receive Date: 20220224
  Receipt Date: 20220224
  Transmission Date: 20220423
  Serious: Yes (Other)
  Sender: FDA-Public Use
  Company Number: US-TEVA-824100ISR

PATIENT
  Age: 29 Year
  Sex: Male

DRUGS (2)
  1. AUSTEDO [Suspect]
     Active Substance: DEUTETRABENAZINE
     Indication: Tardive dyskinesia
     Dosage: 12 MILLIGRAM DAILY; NEW/TITRATING PATIENT
     Route: 065
     Dates: start: 20171012, end: 20171018
  2. AUSTEDO [Suspect]
     Active Substance: DEUTETRABENAZINE
     Dosage: 6 MILLIGRAM DAILY;
     Route: 065
     Dates: start: 20171022, end: 20171031

REACTIONS (7)
  - Hallucination, auditory [Unknown]
  - Feeling jittery [Unknown]
  - Insomnia [Unknown]
  - Product use issue [Unknown]
  - Mood altered [Unknown]
  - Restlessness [Unknown]
  - Agitation [Unknown]

NARRATIVE: CASE EVENT DATE: 20171001
